FAERS Safety Report 21533673 (Version 1)
Quarter: 2022Q4

REPORT INFORMATION
  Report Type: Report from Study
  Country: CA (occurrence: CA)
  Receive Date: 20221101
  Receipt Date: 20221101
  Transmission Date: 20230113
  Serious: Yes (Other)
  Sender: FDA-Public Use
  Company Number: CA-NOVARTISPH-NVSC2022CA146450

PATIENT
  Age: 79 Year
  Sex: Male

DRUGS (2)
  1. ELTROMBOPAG OLAMINE [Suspect]
     Active Substance: ELTROMBOPAG OLAMINE
     Indication: Immune thrombocytopenia
     Dosage: 50 MG, QD
     Route: 048
     Dates: start: 20220603
  2. ELTROMBOPAG OLAMINE [Suspect]
     Active Substance: ELTROMBOPAG OLAMINE
     Dosage: 100 MG, QD (DOSE WAS INCREASED TO 100MG)
     Route: 048
     Dates: start: 20220713, end: 20220830

REACTIONS (5)
  - Platelet count decreased [Unknown]
  - Tooth infection [Unknown]
  - Toothache [Unknown]
  - Fatigue [Unknown]
  - Drug ineffective [Unknown]

NARRATIVE: CASE EVENT DATE: 20220603
